FAERS Safety Report 7349335-3 (Version None)
Quarter: 2011Q1

REPORT INFORMATION
  Report Type: 
  Country: None (occurrence: None)
  Receive Date: 20110314
  Receipt Date: 20110307
  Transmission Date: 20110831
  Serious: Yes (Life-Threatening, Hospitalization, Other)
  Sender: FDA-Public Use
  Company Number: US-RB-023342-11

PATIENT
  Age: 30 Year
  Sex: Male

DRUGS (1)
  1. SUBOXONE [Suspect]
     Indication: DRUG DEPENDENCE
     Route: 060
     Dates: end: 20110219

REACTIONS (3)
  - DRUG WITHDRAWAL SYNDROME [None]
  - OVERDOSE [None]
  - SUICIDE ATTEMPT [None]
